FAERS Safety Report 10541533 (Version 2)
Quarter: 2014Q4

REPORT INFORMATION
  Report Type: Spontaneous
  Country: US (occurrence: US)
  Receive Date: 20141024
  Receipt Date: 20141217
  Transmission Date: 20150529
  Serious: Yes (Death)
  Sender: FDA-Public Use
  Company Number: PHEH2014US021002

PATIENT
  Age: 50 Year
  Sex: Female

DRUGS (3)
  1. EXFORGE [Concomitant]
     Active Substance: AMLODIPINE BESYLATE\VALSARTAN
     Indication: PRODUCT USED FOR UNKNOWN INDICATION
     Dosage: UNK OT, UNK
     Route: 065
  2. OXYCODONE HCL [Concomitant]
     Active Substance: OXYCODONE HYDROCHLORIDE
     Indication: PRODUCT USED FOR UNKNOWN INDICATION
     Dosage: UNK OT, UNK
     Route: 065
  3. ZYKADIA [Suspect]
     Active Substance: CERITINIB
     Indication: SOFT TISSUE SARCOMA
     Dosage: 150 MG, QD (DAILY)
     Route: 065
     Dates: start: 20140903

REACTIONS (1)
  - Death [Fatal]

NARRATIVE: CASE EVENT DATE: 20141016
